FAERS Safety Report 12266575 (Version 1)
Quarter: 2016Q2

REPORT INFORMATION
  Report Type: Spontaneous
  Country: US (occurrence: None)
  Receive Date: 20160413
  Receipt Date: 20160413
  Transmission Date: 20160815
  Serious: No
  Sender: FDA-Public Use
  Company Number: None

PATIENT
  Age: 80 Year
  Sex: Male
  Weight: 160 kg

DRUGS (7)
  1. FISH OIL [Concomitant]
     Active Substance: FISH OIL
  2. HYDROCHOROTHIAZIDE [Concomitant]
     Active Substance: HYDROCHLOROTHIAZIDE
  3. FINASTERIDE. [Concomitant]
     Active Substance: FINASTERIDE
  4. AMOXICILLIN/CLAVULANATE SANDOZ [Suspect]
     Active Substance: AMOXICILLIN\CLAVULANATE POTASSIUM
     Indication: RHINITIS
     Route: 048
     Dates: start: 20160316, end: 20160326
  5. AMOXICILLIN/CLAVULANATE SANDOZ [Suspect]
     Active Substance: AMOXICILLIN\CLAVULANATE POTASSIUM
     Indication: NASOPHARYNGITIS
     Route: 048
     Dates: start: 20160316, end: 20160326
  6. CENTRIM SILVER [Concomitant]
  7. AMOXICILLIN/CLAVULANATE SANDOZ [Suspect]
     Active Substance: AMOXICILLIN\CLAVULANATE POTASSIUM
     Indication: LOWER RESPIRATORY TRACT CONGESTION
     Route: 048
     Dates: start: 20160316, end: 20160326

REACTIONS (2)
  - Glossodynia [None]
  - Penile erythema [None]

NARRATIVE: CASE EVENT DATE: 20160324
